FAERS Safety Report 8581526-6 (Version None)
Quarter: 2012Q3

REPORT INFORMATION
  Report Type: 
  Country: None (occurrence: None)
  Receive Date: 20120809
  Receipt Date: 20120803
  Transmission Date: 20120928
  Serious: Yes (Hospitalization, Other)
  Sender: FDA-Public Use
  Company Number: DE-SANOFI-AVENTIS-200912207DE

PATIENT
  Age: 74 Year
  Sex: Male

DRUGS (7)
  1. DEXAMETHASONE [Concomitant]
     Dosage: DOSE AS USED: NOT REPORTED
  2. FENTANYL [Concomitant]
     Dosage: DOSE AS USED: NOT REPORTED
     Dates: start: 20090401
  3. PANTOPRAZOLE [Concomitant]
     Dosage: DOSE AS USED: NOT REPORTED
     Dates: start: 20090526
  4. PREDNISONE TAB [Concomitant]
     Dosage: DOSE AS USED: NOT REPORTED
  5. ENALAPRIL MALEATE AND HYDROCHLOROTHIAZIDE [Concomitant]
     Dosage: DOSE AS USED: NOT REPORTED
     Dates: start: 20040101
  6. BLINDED THERAPY [Suspect]
     Route: 048
     Dates: start: 20090520, end: 20090712
  7. DOCETAXEL [Suspect]
     Route: 042
     Dates: start: 20090520, end: 20090724

REACTIONS (5)
  - SYNCOPE [None]
  - ANAEMIA [None]
  - ANXIETY [None]
  - LEUKOPENIA [None]
  - DIZZINESS [None]
